FAERS Safety Report 21981403 (Version 1)
Quarter: 2023Q1

REPORT INFORMATION
  Report Type: Spontaneous
  Country: US (occurrence: US)
  Receive Date: 20230211
  Receipt Date: 20230211
  Transmission Date: 20230417
  Serious: No
  Sender: FDA-Public Use
  Company Number: US-TEVA-2023-US-2849770

PATIENT
  Age: 71 Year
  Sex: Female

DRUGS (1)
  1. DEXTROAMPHET SACCHARAT, AMPHET ASPARTATE, DEXTROAMPHET SULFATE AND AMP [Suspect]
     Active Substance: AMPHETAMINE ASPARTATE\AMPHETAMINE SULFATE\DEXTROAMPHETAMINE SACCHARATE\DEXTROAMPHETAMINE SULFATE
     Indication: Bipolar disorder
     Route: 065
     Dates: start: 2003

REACTIONS (5)
  - Depression [Unknown]
  - Drug diversion [Unknown]
  - Drug ineffective [Unknown]
  - Product dose omission issue [Unknown]
  - Product prescribing issue [Unknown]
